FAERS Safety Report 25831672 (Version 1)
Quarter: 2025Q3

REPORT INFORMATION
  Report Type: Spontaneous
  Country: US (occurrence: US)
  Receive Date: 20250922
  Receipt Date: 20250922
  Transmission Date: 20251021
  Serious: No
  Sender: SANOFI AVENTIS
  Company Number: US-SA-2025SA281334

PATIENT
  Age: 53 Year
  Sex: Female
  Weight: 81.64 kg

DRUGS (18)
  1. DUPIXENT [Suspect]
     Active Substance: DUPILUMAB
     Indication: Eosinophilic oesophagitis
     Dosage: 1 DF, QW
     Route: 058
  2. ALREX [Concomitant]
     Active Substance: LOTEPREDNOL ETABONATE
  3. COENZYME Q10 [Concomitant]
     Active Substance: DIETARY SUPPLEMENT\UBIDECARENONE
  4. LACTOBACILLUS ACIDOPHILUS [Concomitant]
     Active Substance: LACTOBACILLUS ACIDOPHILUS
  5. Ocuvite eye health [Concomitant]
  6. MAGNESIUM [Concomitant]
     Active Substance: MAGNESIUM
  7. VITAMIN C [Concomitant]
     Active Substance: ASCORBIC ACID
  8. VITAMIN D3 [Concomitant]
     Active Substance: CHOLECALCIFEROL
  9. VITAMIN B COMPLEX [Concomitant]
     Active Substance: CYANOCOBALAMIN\DEXPANTHENOL\NIACINAMIDE\PYRIDOXINE HYDROCHLORIDE\RIBOFLAVIN 5^-PHOSPHATE SODIUM\THIA
  10. ACYCLOVIR [Concomitant]
     Active Substance: ACYCLOVIR
  11. ALBUTEROL SULFATE [Concomitant]
     Active Substance: ALBUTEROL SULFATE
  12. FAMOTIDINE [Concomitant]
     Active Substance: FAMOTIDINE
  13. NURTEC ODT [Concomitant]
     Active Substance: RIMEGEPANT SULFATE
  14. VIVELLE-DOT [Concomitant]
     Active Substance: ESTRADIOL
  15. PROGESTERONE [Concomitant]
     Active Substance: PROGESTERONE
  16. ZEPBOUND [Concomitant]
     Active Substance: TIRZEPATIDE
  17. VYEPTI [Concomitant]
     Active Substance: EPTINEZUMAB-JJMR
  18. BOTOX [Concomitant]
     Active Substance: ONABOTULINUMTOXINA

REACTIONS (2)
  - Migraine [Unknown]
  - Infusion related reaction [Unknown]

NARRATIVE: CASE EVENT DATE: 20250801
